FAERS Safety Report 16228098 (Version 1)
Quarter: 2019Q2

REPORT INFORMATION
  Report Type: Spontaneous
  Country: US (occurrence: US)
  Receive Date: 20190422
  Receipt Date: 20190422
  Transmission Date: 20190711
  Serious: Yes (Other)
  Sender: FDA-Public Use
  Company Number: None

PATIENT
  Age: 33 Year
  Sex: Female
  Weight: 85.5 kg

DRUGS (12)
  1. VITAMIN D3 [Concomitant]
     Active Substance: CHOLECALCIFEROL
  2. TROKENDI [Suspect]
     Active Substance: TOPIRAMATE
     Indication: MIGRAINE
     Dosage: ?          QUANTITY:1 CAPSULE(S);?
     Route: 048
  3. PHENTERMINE. [Concomitant]
     Active Substance: PHENTERMINE
  4. TRAMADOL. [Concomitant]
     Active Substance: TRAMADOL
  5. LEVOTHYROXINE. [Concomitant]
     Active Substance: LEVOTHYROXINE
  6. FLUOXETINE [Concomitant]
     Active Substance: FLUOXETINE HYDROCHLORIDE
  7. FIORICET [Concomitant]
     Active Substance: ACETAMINOPHEN\BUTALBITAL\CAFFEINE
  8. ALPROZOLAM [Concomitant]
     Active Substance: ALPRAZOLAM
  9. IBUPROFEN. [Concomitant]
     Active Substance: IBUPROFEN
  10. MAXSALT [Concomitant]
  11. RANITIDINE. [Concomitant]
     Active Substance: RANITIDINE
  12. TROKENDI [Concomitant]
     Active Substance: TOPIRAMATE

REACTIONS (4)
  - Balance disorder [None]
  - Muscle twitching [None]
  - Pain in extremity [None]
  - Muscular weakness [None]

NARRATIVE: CASE EVENT DATE: 20190415
